FAERS Safety Report 4845470-X (Version None)
Quarter: 2005Q4

REPORT INFORMATION
  Report Type: 
  Country: None (occurrence: None)
  Receive Date: 20051201
  Receipt Date: 20051111
  Transmission Date: 20060501
  Serious: Yes (Hospitalization, Other)
  Sender: FDA-Public Use
  Company Number: US_0411108239

PATIENT
  Age: 24 Year
  Sex: Male
  Weight: 86.6 kg

DRUGS (5)
  1. ZYPREXA [Suspect]
     Indication: SCHIZOPHRENIA
     Dosage: 30 MG
     Dates: start: 20031001, end: 20040301
  2. HALDOL (HALOPERIDOL DACANOATE) [Concomitant]
  3. COGENTIN [Concomitant]
  4. DIVALPROEX (VALPROATE SEMISODIUM) [Concomitant]
  5. TRAZODONE HCL [Concomitant]

REACTIONS (13)
  - ABDOMINAL PAIN [None]
  - BLOOD SODIUM DECREASED [None]
  - DEHYDRATION [None]
  - DIABETES MELLITUS INSULIN-DEPENDENT [None]
  - DIABETIC KETOACIDOSIS [None]
  - HEART RATE INCREASED [None]
  - HYPOKALAEMIA [None]
  - LEUKOCYTOSIS [None]
  - METABOLIC ACIDOSIS [None]
  - OBESITY [None]
  - PRESCRIBED OVERDOSE [None]
  - VOMITING [None]
  - WEIGHT INCREASED [None]
